FAERS Safety Report 21752461 (Version 2)
Quarter: 2024Q2

REPORT INFORMATION
  Report Type: Report from Study
  Country: US (occurrence: US)
  Receive Date: 20221220
  Receipt Date: 20240411
  Transmission Date: 20240715
  Serious: Yes (Other)
  Sender: FDA-Public Use
  Company Number: US-ABBVIE-4242039

PATIENT
  Age: 39 Year
  Sex: Female

DRUGS (1)
  1. HUMIRA [Suspect]
     Active Substance: ADALIMUMAB
     Indication: Hidradenitis
     Dosage: CITRATE FREE
     Route: 058

REACTIONS (3)
  - Oophorectomy [Recovering/Resolving]
  - Influenza [Recovering/Resolving]
  - Respiratory tract congestion [Not Recovered/Not Resolved]

NARRATIVE: CASE EVENT DATE: 20221114
